FAERS Safety Report 8027938-0 (Version None)
Quarter: 2012Q1

REPORT INFORMATION
  Report Type: 
  Country: None (occurrence: None)
  Receive Date: 20120106
  Receipt Date: 20120103
  Transmission Date: 20120608
  Serious: No
  Sender: FDA-Public Use
  Company Number: US-B.I. PHARMACEUTICALS,INC./RIDGEFIELD-2012-BP-00134BP

PATIENT
  Sex: Male

DRUGS (1)
  1. ZANTAC 150 [Suspect]
     Indication: GASTRITIS
     Route: 048
     Dates: start: 20110101

REACTIONS (1)
  - DRUG INEFFECTIVE [None]
